FAERS Safety Report 12889122 (Version 2)
Quarter: 2016Q4

REPORT INFORMATION
  Report Type: Spontaneous
  Country: US (occurrence: US)
  Receive Date: 20161027
  Receipt Date: 20161101
  Transmission Date: 20170207
  Serious: Yes (Other)
  Sender: FDA-Public Use
  Company Number: US-PFIZER INC-2016499034

PATIENT
  Age: 22 Year
  Sex: Male
  Weight: 79.38 kg

DRUGS (1)
  1. RELPAX [Suspect]
     Active Substance: ELETRIPTAN HYDROBROMIDE
     Indication: MIGRAINE
     Dosage: UNK, AS NEEDED (TAKE ONE TABLET A DAY AS NEEDED)
     Dates: start: 2013, end: 201610

REACTIONS (1)
  - Sports injury [Unknown]

NARRATIVE: CASE EVENT DATE: 20160617
